FAERS Safety Report 9290002 (Version 1)
Quarter: 2013Q2

REPORT INFORMATION
  Report Type: Spontaneous
  Country: US (occurrence: None)
  Receive Date: 20130514
  Receipt Date: 20130514
  Transmission Date: 20140414
  Serious: Yes (Death, Hospitalization)
  Sender: FDA-Public Use
  Company Number: None

PATIENT
  Age: 41 Year
  Sex: Male

DRUGS (1)
  1. IPLIMUMAB [Suspect]
     Indication: MALIGNANT MELANOMA
     Dates: start: 20111205, end: 20120207

REACTIONS (5)
  - Drug-induced liver injury [None]
  - Bone lesion [None]
  - Drug-induced liver injury [None]
  - Cardiolipin antibody positive [None]
  - Immune system disorder [None]
